FAERS Safety Report 8802936 (Version 2)
Quarter: 2012Q4

REPORT INFORMATION
  Report Type: 
  Country: AU (occurrence: AU)
  Receive Date: 20120922
  Receipt Date: 20121008
  Transmission Date: 20130627
  Serious: Yes (Death, Hospitalization)
  Sender: FDA-Public Use
  Company Number: AU-B.I. PHARMACEUTICALS,INC./RIDGEFIELD-2012-AU-01641AU

PATIENT
  Age: 84 Year
  Sex: Female

DRUGS (9)
  1. PRADAXA [Suspect]
     Indication: ATRIAL FIBRILLATION
     Dosage: 110 mg
     Dates: start: 201201
  2. PRADAXA [Suspect]
     Indication: CEREBROVASCULAR ACCIDENT PROPHYLAXIS
  3. PREDNISOLONE [Concomitant]
  4. SPIRIVA [Concomitant]
  5. VENTOLIN [Concomitant]
  6. VERAPAMIL [Concomitant]
  7. SPIRONOLACTONE [Concomitant]
  8. FRUSEMIDE [Concomitant]
  9. SLOW K [Concomitant]

REACTIONS (1)
  - Respiratory failure [Fatal]
